FAERS Safety Report 21259958 (Version 2)
Quarter: 2022Q3

REPORT INFORMATION
  Report Type: Other
  Country: GB (occurrence: GB)
  Receive Date: 20220826
  Receipt Date: 20220905
  Transmission Date: 20221027
  Serious: Yes (Other)
  Sender: FDA-Public Use
  Company Number: GB-MHRA-MED-202208152320383220-SFRNL

PATIENT

DRUGS (1)
  1. MONTELUKAST SODIUM [Suspect]
     Active Substance: MONTELUKAST SODIUM
     Indication: Asthma
     Dosage: 4 MILLIGRAM, HS
     Route: 065
     Dates: start: 2018

REACTIONS (10)
  - Abnormal behaviour [Not Recovered/Not Resolved]
  - Medication error [Unknown]
  - Hallucination [Unknown]
  - Decreased interest [Unknown]
  - Antisocial behaviour [Unknown]
  - Mood swings [Unknown]
  - Aggression [Unknown]
  - Nightmare [Unknown]
  - Depression [Unknown]
  - Anxiety [Unknown]

NARRATIVE: CASE EVENT DATE: 20180101
